FAERS Safety Report 6313943-9 (Version None)
Quarter: 2009Q3

REPORT INFORMATION
  Report Type: 
  Country: None (occurrence: None)
  Receive Date: 20090818
  Receipt Date: 20090330
  Transmission Date: 20100115
  Serious: No
  Sender: FDA-Public Use
  Company Number: PHEH2009US07943

PATIENT
  Sex: Male

DRUGS (1)
  1. ZELNORM [Suspect]

REACTIONS (2)
  - EMOTIONAL DISTRESS [None]
  - INJURY [None]
